FAERS Safety Report 23988145 (Version 6)
Quarter: 2025Q1

REPORT INFORMATION
  Report Type: Spontaneous
  Country: CA (occurrence: CA)
  Receive Date: 20240619
  Receipt Date: 20250325
  Transmission Date: 20250409
  Serious: Yes (Death, Other)
  Sender: Haleon PLC
  Company Number: CA-SANDOZ-SDZ2023CA076080

PATIENT
  Sex: Female

DRUGS (266)
  1. DICLOFENAC [Suspect]
     Active Substance: DICLOFENAC
     Indication: Product used for unknown indication
     Route: 065
  2. DICLOFENAC [Suspect]
     Active Substance: DICLOFENAC
     Route: 065
  3. PREGABALIN [Suspect]
     Active Substance: PREGABALIN
     Indication: Product used for unknown indication
     Route: 065
  4. CHLORHEXIDINE [Suspect]
     Active Substance: CHLORHEXIDINE
     Indication: Product used for unknown indication
     Route: 002
  5. HYDROCORTISONE ACETATE [Suspect]
     Active Substance: HYDROCORTISONE ACETATE
     Indication: Product used for unknown indication
     Route: 058
  6. HYDROCORTISONE SODIUM SUCCINATE [Suspect]
     Active Substance: HYDROCORTISONE SODIUM SUCCINATE
     Indication: Product used for unknown indication
     Route: 049
  7. HYDROCORTISONE SODIUM SUCCINATE [Suspect]
     Active Substance: HYDROCORTISONE SODIUM SUCCINATE
     Route: 048
  8. PANADOL [Suspect]
     Active Substance: ACETAMINOPHEN
     Indication: Product used for unknown indication
     Route: 065
  9. PANADOL [Suspect]
     Active Substance: ACETAMINOPHEN
     Route: 065
  10. ALENDRONATE SODIUM [Suspect]
     Active Substance: ALENDRONATE SODIUM
     Indication: Product used for unknown indication
     Route: 065
  11. VITAMIN D3 [Suspect]
     Active Substance: CHOLECALCIFEROL
     Indication: Product used for unknown indication
     Route: 058
  12. VITAMIN D3 [Suspect]
     Active Substance: CHOLECALCIFEROL
     Route: 016
  13. VITAMIN D3 [Suspect]
     Active Substance: CHOLECALCIFEROL
     Route: 065
  14. SODIUM FLUORIDE [Suspect]
     Active Substance: SODIUM FLUORIDE
     Indication: Product used for unknown indication
     Route: 065
  15. MESALAMINE [Suspect]
     Active Substance: MESALAMINE
     Indication: Product used for unknown indication
     Route: 065
  16. CALCIUM [Suspect]
     Active Substance: CALCIUM
     Indication: Product used for unknown indication
     Route: 065
  17. ACETAMINOPHEN [Suspect]
     Active Substance: ACETAMINOPHEN
     Indication: Product used for unknown indication
     Route: 065
  18. ACETAMINOPHEN [Suspect]
     Active Substance: ACETAMINOPHEN
     Route: 065
  19. ADALIMUMAB [Suspect]
     Active Substance: ADALIMUMAB
     Indication: Product used for unknown indication
     Route: 042
  20. ADALIMUMAB [Suspect]
     Active Substance: ADALIMUMAB
     Route: 058
  21. ADALIMUMAB [Suspect]
     Active Substance: ADALIMUMAB
     Route: 058
  22. ADALIMUMAB [Suspect]
     Active Substance: ADALIMUMAB
     Route: 048
  23. ERELZI [Suspect]
     Active Substance: ETANERCEPT-SZZS
     Indication: Product used for unknown indication
     Route: 058
  24. ERELZI [Suspect]
     Active Substance: ETANERCEPT-SZZS
     Route: 058
  25. APREMILAST [Suspect]
     Active Substance: APREMILAST
     Indication: Product used for unknown indication
     Dosage: (1 EVERY 1 DAYS)
     Route: 065
  26. METHOTREXATE [Suspect]
     Active Substance: METHOTREXATE
     Indication: Product used for unknown indication
     Route: 048
  27. METHOTREXATE [Suspect]
     Active Substance: METHOTREXATE
     Route: 048
  28. METHOTREXATE [Suspect]
     Active Substance: METHOTREXATE
     Route: 013
  29. METHOTREXATE [Suspect]
     Active Substance: METHOTREXATE
     Dosage: (1 EVERY 1 DAYS)
     Route: 048
  30. METHOTREXATE [Suspect]
     Active Substance: METHOTREXATE
     Route: 048
  31. METHOTREXATE [Suspect]
     Active Substance: METHOTREXATE
     Route: 048
  32. METHOTREXATE [Suspect]
     Active Substance: METHOTREXATE
     Dosage: (1 EVERY 1 DAYS)
     Route: 058
  33. METHOTREXATE [Suspect]
     Active Substance: METHOTREXATE
     Route: 016
  34. METHOTREXATE [Suspect]
     Active Substance: METHOTREXATE
     Dosage: (1 EVERY 1 DAYS)
     Route: 048
  35. METHOTREXATE [Suspect]
     Active Substance: METHOTREXATE
     Route: 065
  36. METHOTREXATE [Suspect]
     Active Substance: METHOTREXATE
     Route: 048
  37. METHOTREXATE [Suspect]
     Active Substance: METHOTREXATE
     Route: 058
  38. METHOTREXATE [Suspect]
     Active Substance: METHOTREXATE
     Route: 013
  39. METHOTREXATE [Suspect]
     Active Substance: METHOTREXATE
     Route: 048
  40. METHOTREXATE [Suspect]
     Active Substance: METHOTREXATE
     Dosage: (1 EVERY 1DAYS)
     Route: 065
  41. METHOTREXATE [Suspect]
     Active Substance: METHOTREXATE
     Route: 050
  42. METHOTREXATE [Suspect]
     Active Substance: METHOTREXATE
     Route: 048
  43. CLONIDINE HYDROCHLORIDE [Suspect]
     Active Substance: CLONIDINE HYDROCHLORIDE
     Indication: Product used for unknown indication
     Route: 065
  44. CHOLECALCIFEROL [Suspect]
     Active Substance: CHOLECALCIFEROL
     Indication: Product used for unknown indication
     Route: 065
  45. CHOLECALCIFEROL [Suspect]
     Active Substance: CHOLECALCIFEROL
     Route: 016
  46. CHOLECALCIFEROL [Suspect]
     Active Substance: CHOLECALCIFEROL
     Route: 058
  47. DILTIAZEM HYDROCHLORIDE [Suspect]
     Active Substance: DILTIAZEM HYDROCHLORIDE
     Indication: Product used for unknown indication
     Route: 042
  48. FOLIC ACID [Suspect]
     Active Substance: FOLIC ACID
     Indication: Product used for unknown indication
     Route: 048
  49. FOLIC ACID [Suspect]
     Active Substance: FOLIC ACID
     Route: 048
  50. FOLIC ACID [Suspect]
     Active Substance: FOLIC ACID
     Route: 048
  51. FOLIC ACID [Suspect]
     Active Substance: FOLIC ACID
     Route: 065
  52. FOLIC ACID [Suspect]
     Active Substance: FOLIC ACID
     Route: 065
  53. FOLIC ACID [Suspect]
     Active Substance: FOLIC ACID
     Route: 065
  54. FOLIC ACID [Suspect]
     Active Substance: FOLIC ACID
     Route: 065
  55. FOLIC ACID [Suspect]
     Active Substance: FOLIC ACID
     Route: 049
  56. FOLIC ACID [Suspect]
     Active Substance: FOLIC ACID
     Dosage: (1 EVERY 1 DAYS)
     Route: 048
  57. FOLIC ACID [Suspect]
     Active Substance: FOLIC ACID
     Route: 065
  58. MORPHINE SULFATE [Suspect]
     Active Substance: MORPHINE SULFATE
     Indication: Product used for unknown indication
     Route: 065
  59. AZATHIOPRINE [Suspect]
     Active Substance: AZATHIOPRINE
     Indication: Product used for unknown indication
     Route: 065
  60. INFLIXIMAB [Suspect]
     Active Substance: INFLIXIMAB
     Indication: Product used for unknown indication
     Route: 065
  61. INFLIXIMAB [Suspect]
     Active Substance: INFLIXIMAB
     Route: 042
  62. ABATACEPT [Suspect]
     Active Substance: ABATACEPT
     Indication: Product used for unknown indication
     Route: 042
  63. BENZOYLPAS CALCIUM ANHYDROUS [Suspect]
     Active Substance: BENZOYLPAS CALCIUM ANHYDROUS
     Indication: Product used for unknown indication
     Route: 065
  64. CALCIUM CITRATE [Suspect]
     Active Substance: CALCIUM CITRATE
     Indication: Product used for unknown indication
     Route: 065
  65. CALCIUM GLUBIONATE [Suspect]
     Active Substance: CALCIUM GLUBIONATE
     Indication: Product used for unknown indication
     Route: 065
  66. CERTOLIZUMAB PEGOL [Suspect]
     Active Substance: CERTOLIZUMAB PEGOL
     Indication: Product used for unknown indication
     Route: 058
  67. CIMZIA [Suspect]
     Active Substance: CERTOLIZUMAB PEGOL
     Indication: Product used for unknown indication
     Route: 058
  68. CIMZIA [Suspect]
     Active Substance: CERTOLIZUMAB PEGOL
     Route: 058
  69. CIMZIA [Suspect]
     Active Substance: CERTOLIZUMAB PEGOL
     Dosage: (1 EVERY 1 DAYS)
     Route: 058
  70. CORTISONE ACETATE [Suspect]
     Active Substance: CORTISONE ACETATE
     Indication: Product used for unknown indication
     Route: 003
  71. CORTISONE ACETATE [Suspect]
     Active Substance: CORTISONE ACETATE
     Route: 065
  72. DESOXIMETASONE [Suspect]
     Active Substance: DESOXIMETASONE
     Indication: Product used for unknown indication
     Route: 048
  73. DESOXIMETASONE [Suspect]
     Active Substance: DESOXIMETASONE
     Route: 003
  74. DESOXIMETASONE [Suspect]
     Active Substance: DESOXIMETASONE
     Route: 003
  75. SULFISOMIDINE [Suspect]
     Active Substance: SULFISOMIDINE
     Indication: Product used for unknown indication
     Route: 065
  76. ENBREL [Suspect]
     Active Substance: ETANERCEPT
     Indication: Product used for unknown indication
     Route: 058
  77. ENBREL [Suspect]
     Active Substance: ETANERCEPT
     Dosage: (1 EVERY 1 WEEKS)
     Route: 058
  78. ENBREL [Suspect]
     Active Substance: ETANERCEPT
     Dosage: (1 EVERY 1 WEEKS)
     Route: 058
  79. ENBREL [Suspect]
     Active Substance: ETANERCEPT
     Dosage: (1 EVERY 1 DAYS)
     Route: 058
  80. ENTYVIO [Suspect]
     Active Substance: VEDOLIZUMAB
     Indication: Product used for unknown indication
     Route: 065
  81. FRAMYCETIN SULFATE [Suspect]
     Active Substance: FRAMYCETIN SULFATE
     Indication: Product used for unknown indication
     Route: 065
  82. GOLIMUMAB [Suspect]
     Active Substance: GOLIMUMAB
     Indication: Product used for unknown indication
     Route: 065
  83. GRAMICIDIN [Suspect]
     Active Substance: GRAMICIDIN
     Indication: Product used for unknown indication
     Route: 065
  84. HUMIRA [Suspect]
     Active Substance: ADALIMUMAB
     Indication: Product used for unknown indication
     Route: 058
  85. HUMIRA [Suspect]
     Active Substance: ADALIMUMAB
     Route: 058
  86. HUMIRA [Suspect]
     Active Substance: ADALIMUMAB
     Route: 058
  87. HUMIRA [Suspect]
     Active Substance: ADALIMUMAB
     Route: 058
  88. HYDROCORTISONE [Suspect]
     Active Substance: HYDROCORTISONE
     Indication: Product used for unknown indication
     Route: 049
  89. HYDROCORTISONE [Suspect]
     Active Substance: HYDROCORTISONE
     Route: 058
  90. HYDROCORTISONE [Suspect]
     Active Substance: HYDROCORTISONE
     Route: 048
  91. DOXYCYCLINE HYCLATE [Suspect]
     Active Substance: DOXYCYCLINE HYCLATE
     Indication: Product used for unknown indication
     Route: 065
  92. HYDROXYCHLOROQUINE [Suspect]
     Active Substance: HYDROXYCHLOROQUINE
     Indication: Product used for unknown indication
     Route: 048
  93. HYDROXYCHLOROQUINE [Suspect]
     Active Substance: HYDROXYCHLOROQUINE
     Route: 048
  94. HYDROXYCHLOROQUINE [Suspect]
     Active Substance: HYDROXYCHLOROQUINE
     Route: 048
  95. HYDROXYCHLOROQUINE [Suspect]
     Active Substance: HYDROXYCHLOROQUINE
     Route: 058
  96. HYDROXYCHLOROQUINE SULFATE [Suspect]
     Active Substance: HYDROXYCHLOROQUINE SULFATE
     Indication: Product used for unknown indication
     Route: 048
  97. HYDROXYCHLOROQUINE SULFATE [Suspect]
     Active Substance: HYDROXYCHLOROQUINE SULFATE
     Route: 049
  98. HYDROXYCHLOROQUINE SULFATE [Suspect]
     Active Substance: HYDROXYCHLOROQUINE SULFATE
     Route: 048
  99. HYDROXYCHLOROQUINE SULFATE [Suspect]
     Active Substance: HYDROXYCHLOROQUINE SULFATE
     Route: 048
  100. HYDROXYCHLOROQUINE SULFATE [Suspect]
     Active Substance: HYDROXYCHLOROQUINE SULFATE
     Route: 048
  101. HYDROXYCHLOROQUINE SULFATE [Suspect]
     Active Substance: HYDROXYCHLOROQUINE SULFATE
     Route: 065
  102. HYDROXYCHLOROQUINE SULFATE [Suspect]
     Active Substance: HYDROXYCHLOROQUINE SULFATE
     Route: 065
  103. HYDROXYCHLOROQUINE SULFATE [Suspect]
     Active Substance: HYDROXYCHLOROQUINE SULFATE
     Route: 050
  104. ISOPROPYL ALCOHOL [Suspect]
     Active Substance: ISOPROPYL ALCOHOL
     Indication: Product used for unknown indication
     Route: 048
  105. LYRICA [Suspect]
     Active Substance: PREGABALIN
     Indication: Product used for unknown indication
     Route: 065
  106. METHYLPREDNISOLONE SODIUM SUCCINATE [Suspect]
     Active Substance: METHYLPREDNISOLONE SODIUM SUCCINATE
     Indication: Product used for unknown indication
     Route: 048
  107. NAPROXEN SODIUM [Suspect]
     Active Substance: NAPROXEN SODIUM
     Indication: Product used for unknown indication
     Route: 065
  108. NAPROXEN SODIUM [Suspect]
     Active Substance: NAPROXEN SODIUM
     Route: 065
  109. NITROFURAZONE [Suspect]
     Active Substance: NITROFURAZONE
     Indication: Product used for unknown indication
     Route: 048
  110. NITROFURAZONE [Suspect]
     Active Substance: NITROFURAZONE
     Route: 048
  111. ORENCIA [Suspect]
     Active Substance: ABATACEPT
     Indication: Product used for unknown indication
     Route: 065
  112. ORENCIA [Suspect]
     Active Substance: ABATACEPT
     Route: 042
  113. ORENCIA [Suspect]
     Active Substance: ABATACEPT
     Route: 065
  114. ORENCIA [Suspect]
     Active Substance: ABATACEPT
     Route: 042
  115. ORENCIA [Suspect]
     Active Substance: ABATACEPT
     Route: 065
  116. ORENCIA [Suspect]
     Active Substance: ABATACEPT
     Route: 058
  117. ORENCIA [Suspect]
     Active Substance: ABATACEPT
     Route: 053
  118. ORENCIA [Suspect]
     Active Substance: ABATACEPT
     Route: 058
  119. ORENCIA [Suspect]
     Active Substance: ABATACEPT
     Route: 058
  120. ORENCIA [Suspect]
     Active Substance: ABATACEPT
     Route: 058
  121. ORENCIA [Suspect]
     Active Substance: ABATACEPT
     Route: 065
  122. ORENCIA [Suspect]
     Active Substance: ABATACEPT
     Route: 065
  123. ORENCIA [Suspect]
     Active Substance: ABATACEPT
     Route: 050
  124. OTEZLA [Suspect]
     Active Substance: APREMILAST
     Indication: Product used for unknown indication
     Route: 048
  125. OTEZLA [Suspect]
     Active Substance: APREMILAST
     Route: 065
  126. OTEZLA [Suspect]
     Active Substance: APREMILAST
     Route: 048
  127. OTEZLA [Suspect]
     Active Substance: APREMILAST
     Route: 065
  128. OTEZLA [Suspect]
     Active Substance: APREMILAST
     Route: 065
  129. OXYCODONE TEREPHTHALATE [Suspect]
     Active Substance: OXYCODONE TEREPHTHALATE
     Indication: Product used for unknown indication
     Route: 065
  130. PARA-AMINOSALICYLIC ACID [Suspect]
     Active Substance: AMINOSALICYLIC ACID
     Indication: Product used for unknown indication
     Route: 065
  131. PHTHALYLSULFATHIAZOLE [Suspect]
     Active Substance: PHTHALYLSULFATHIAZOLE
     Indication: Product used for unknown indication
     Route: 048
  132. PHTHALYLSULFATHIAZOLE [Suspect]
     Active Substance: PHTHALYLSULFATHIAZOLE
     Route: 048
  133. PHTHALYLSULFATHIAZOLE [Suspect]
     Active Substance: PHTHALYLSULFATHIAZOLE
     Route: 058
  134. PHTHALYLSULFATHIAZOLE [Suspect]
     Active Substance: PHTHALYLSULFATHIAZOLE
     Route: 048
  135. PHTHALYLSULFATHIAZOLE [Suspect]
     Active Substance: PHTHALYLSULFATHIAZOLE
     Route: 016
  136. PHTHALYLSULFATHIAZOLE [Suspect]
     Active Substance: PHTHALYLSULFATHIAZOLE
     Route: 048
  137. PHTHALYLSULFATHIAZOLE [Suspect]
     Active Substance: PHTHALYLSULFATHIAZOLE
     Route: 048
  138. PHTHALYLSULFATHIAZOLE [Suspect]
     Active Substance: PHTHALYLSULFATHIAZOLE
     Route: 050
  139. PREDNISONE [Suspect]
     Active Substance: PREDNISONE
     Indication: Product used for unknown indication
     Route: 065
  140. PREDNISONE [Suspect]
     Active Substance: PREDNISONE
     Route: 048
  141. PREDNISONE [Suspect]
     Active Substance: PREDNISONE
     Route: 065
  142. PREDNISONE [Suspect]
     Active Substance: PREDNISONE
     Route: 048
  143. PREDNISONE [Suspect]
     Active Substance: PREDNISONE
     Route: 048
  144. PREDNISONE [Suspect]
     Active Substance: PREDNISONE
     Route: 048
  145. PREDNISONE [Suspect]
     Active Substance: PREDNISONE
     Route: 048
  146. PSEUDOEPHEDRINE [Suspect]
     Active Substance: PSEUDOEPHEDRINE
     Indication: Product used for unknown indication
     Route: 065
  147. CLOTRIMAZOLE\HYDROCORTISONE [Suspect]
     Active Substance: CLOTRIMAZOLE\HYDROCORTISONE
     Indication: Product used for unknown indication
     Route: 065
  148. CLOTRIMAZOLE\HYDROCORTISONE [Suspect]
     Active Substance: CLOTRIMAZOLE\HYDROCORTISONE
     Route: 048
  149. CLOTRIMAZOLE\HYDROCORTISONE [Suspect]
     Active Substance: CLOTRIMAZOLE\HYDROCORTISONE
     Route: 048
  150. CLOTRIMAZOLE\HYDROCORTISONE [Suspect]
     Active Substance: CLOTRIMAZOLE\HYDROCORTISONE
     Route: 065
  151. SALICYLIC ACID [Suspect]
     Active Substance: SALICYLIC ACID
     Indication: Product used for unknown indication
     Route: 065
  152. SULFASALAZINE [Suspect]
     Active Substance: SULFASALAZINE
     Indication: Product used for unknown indication
     Route: 058
  153. SULFASALAZINE [Suspect]
     Active Substance: SULFASALAZINE
     Route: 058
  154. SULFASALAZINE [Suspect]
     Active Substance: SULFASALAZINE
     Route: 058
  155. SULFASALAZINE [Suspect]
     Active Substance: SULFASALAZINE
     Route: 058
  156. SULFASALAZINE [Suspect]
     Active Substance: SULFASALAZINE
     Route: 058
  157. SULFASALAZINE [Suspect]
     Active Substance: SULFASALAZINE
     Route: 058
  158. SULFASALAZINE [Suspect]
     Active Substance: SULFASALAZINE
     Route: 048
  159. THYMOL [Suspect]
     Active Substance: THYMOL
     Indication: Product used for unknown indication
     Route: 048
  160. THYMOL [Suspect]
     Active Substance: THYMOL
     Route: 048
  161. TOCILIZUMAB [Suspect]
     Active Substance: TOCILIZUMAB
     Indication: Product used for unknown indication
     Route: 048
  162. TOCILIZUMAB [Suspect]
     Active Substance: TOCILIZUMAB
     Route: 058
  163. TOCILIZUMAB [Suspect]
     Active Substance: TOCILIZUMAB
     Route: 058
  164. TOCILIZUMAB [Suspect]
     Active Substance: TOCILIZUMAB
     Route: 016
  165. TOCILIZUMAB [Suspect]
     Active Substance: TOCILIZUMAB
     Route: 058
  166. TOCILIZUMAB [Suspect]
     Active Substance: TOCILIZUMAB
     Route: 065
  167. TOCILIZUMAB [Suspect]
     Active Substance: TOCILIZUMAB
     Route: 016
  168. TOCILIZUMAB [Suspect]
     Active Substance: TOCILIZUMAB
     Route: 042
  169. TOCILIZUMAB [Suspect]
     Active Substance: TOCILIZUMAB
     Route: 042
  170. TOCILIZUMAB [Suspect]
     Active Substance: TOCILIZUMAB
     Route: 042
  171. TOCILIZUMAB [Suspect]
     Active Substance: TOCILIZUMAB
     Route: 058
  172. TOCILIZUMAB [Suspect]
     Active Substance: TOCILIZUMAB
     Route: 042
  173. TOCILIZUMAB [Suspect]
     Active Substance: TOCILIZUMAB
     Route: 042
  174. TOCILIZUMAB [Suspect]
     Active Substance: TOCILIZUMAB
     Route: 050
  175. TOFACITINIB CITRATE [Suspect]
     Active Substance: TOFACITINIB CITRATE
     Indication: Product used for unknown indication
     Route: 065
  176. TRAMADOL HYDROCHLORIDE [Suspect]
     Active Substance: TRAMADOL HYDROCHLORIDE
     Indication: Product used for unknown indication
     Route: 065
  177. TRIAMCINOLONE ACETONIDE [Suspect]
     Active Substance: TRIAMCINOLONE ACETONIDE
     Indication: Product used for unknown indication
     Route: 014
  178. TRICLOSAN [Suspect]
     Active Substance: TRICLOSAN
     Indication: Product used for unknown indication
     Route: 065
  179. SULFAMETHOXAZOLE\TRIMETHOPRIM [Suspect]
     Active Substance: SULFAMETHOXAZOLE\TRIMETHOPRIM
     Indication: Product used for unknown indication
     Route: 067
  180. SULFAMETHOXAZOLE\TRIMETHOPRIM [Suspect]
     Active Substance: SULFAMETHOXAZOLE\TRIMETHOPRIM
     Route: 067
  181. TYROTHRICIN [Suspect]
     Active Substance: TYROTHRICIN
     Indication: Product used for unknown indication
     Route: 048
  182. TYROTHRICIN [Suspect]
     Active Substance: TYROTHRICIN
     Route: 048
  183. USTEKINUMAB [Suspect]
     Active Substance: USTEKINUMAB
     Indication: Product used for unknown indication
     Route: 042
  184. XELJANZ [Suspect]
     Active Substance: TOFACITINIB CITRATE
     Indication: Product used for unknown indication
     Route: 065
  185. XELJANZ [Suspect]
     Active Substance: TOFACITINIB CITRATE
     Route: 048
  186. ALENDRONATE [Suspect]
     Active Substance: ALENDRONATE SODIUM
     Indication: Product used for unknown indication
     Route: 065
  187. MYCOPHENOLATE MOFETIL [Suspect]
     Active Substance: MYCOPHENOLATE MOFETIL
     Indication: Product used for unknown indication
     Route: 065
  188. CELECOXIB [Suspect]
     Active Substance: CELECOXIB
     Indication: Product used for unknown indication
     Route: 058
  189. CELECOXIB [Suspect]
     Active Substance: CELECOXIB
     Dosage: (1 EVERY 1 DAYS)
     Route: 065
  190. CELECOXIB [Suspect]
     Active Substance: CELECOXIB
     Route: 065
  191. CELECOXIB [Suspect]
     Active Substance: CELECOXIB
     Route: 048
  192. QUETIAPINE [Suspect]
     Active Substance: QUETIAPINE
     Indication: Product used for unknown indication
     Route: 065
  193. DIPHENHYDRAMINE HYDROCHLORIDE [Suspect]
     Active Substance: DIPHENHYDRAMINE HYDROCHLORIDE
     Indication: Product used for unknown indication
     Route: 065
  194. CETIRIZINE [Suspect]
     Active Substance: CETIRIZINE HYDROCHLORIDE
     Indication: Product used for unknown indication
     Route: 065
  195. CETIRIZINE [Suspect]
     Active Substance: CETIRIZINE HYDROCHLORIDE
     Route: 065
  196. CETIRIZINE [Suspect]
     Active Substance: CETIRIZINE HYDROCHLORIDE
     Route: 048
  197. CETIRIZINE [Suspect]
     Active Substance: CETIRIZINE HYDROCHLORIDE
     Dosage: (1 EVERY 1 DAYS)
     Route: 048
  198. DICLOFENAC POTASSIUM [Suspect]
     Active Substance: DICLOFENAC POTASSIUM
     Indication: Product used for unknown indication
     Route: 065
  199. DICLOFENAC POTASSIUM [Suspect]
     Active Substance: DICLOFENAC POTASSIUM
     Route: 065
  200. CHLORHEXIDINE GLUCONATE\ISOPROPYL ALCOHOL [Suspect]
     Active Substance: CHLORHEXIDINE GLUCONATE\ISOPROPYL ALCOHOL
     Indication: Product used for unknown indication
     Route: 065
  201. CHLORHEXIDINE GLUCONATE\ISOPROPYL ALCOHOL [Suspect]
     Active Substance: CHLORHEXIDINE GLUCONATE\ISOPROPYL ALCOHOL
     Route: 050
  202. TUMS ULTRA [Suspect]
     Active Substance: CALCIUM CARBONATE
     Indication: Product used for unknown indication
     Route: 016
  203. TUMS ULTRA [Suspect]
     Active Substance: CALCIUM CARBONATE
     Route: 065
  204. CHLORHEXIDINE GLUCONATE [Suspect]
     Active Substance: CHLORHEXIDINE GLUCONATE
     Indication: Product used for unknown indication
     Route: 002
  205. DICLOFENAC DIETHYLAMINE [Suspect]
     Active Substance: DICLOFENAC DIETHYLAMINE
     Indication: Product used for unknown indication
     Route: 065
  206. DICLOFENAC DIETHYLAMINE [Suspect]
     Active Substance: DICLOFENAC DIETHYLAMINE
     Route: 065
  207. DICLOFENAC DIETHYLAMINE [Suspect]
     Active Substance: DICLOFENAC DIETHYLAMINE
     Route: 065
  208. ACETAMINOPHEN [Suspect]
     Active Substance: ACETAMINOPHEN
     Indication: Product used for unknown indication
     Route: 065
  209. ACETAMINOPHEN [Suspect]
     Active Substance: ACETAMINOPHEN
     Route: 065
  210. ACETAMINOPHEN [Suspect]
     Active Substance: ACETAMINOPHEN
     Route: 065
  211. ACETAMINOPHEN [Suspect]
     Active Substance: ACETAMINOPHEN
     Route: 065
  212. ACETAMINOPHEN [Suspect]
     Active Substance: ACETAMINOPHEN
     Route: 065
  213. ACETAMINOPHEN [Suspect]
     Active Substance: ACETAMINOPHEN
     Route: 058
  214. ACETAMINOPHEN [Suspect]
     Active Substance: ACETAMINOPHEN
     Route: 050
  215. ACETAMINOPHEN [Suspect]
     Active Substance: ACETAMINOPHEN
     Route: 065
  216. PANTOPRAZOLE SODIUM ANHYDROUS [Suspect]
     Active Substance: PANTOPRAZOLE SODIUM ANHYDROUS
     Indication: Product used for unknown indication
     Route: 016
  217. PANTOPRAZOLE SODIUM ANHYDROUS [Suspect]
     Active Substance: PANTOPRAZOLE SODIUM ANHYDROUS
     Route: 016
  218. IODINE [Suspect]
     Active Substance: IODINE
     Indication: Product used for unknown indication
     Route: 065
  219. IODINE [Suspect]
     Active Substance: IODINE
     Route: 065
  220. IODINE [Suspect]
     Active Substance: IODINE
     Route: 065
  221. IODINE [Suspect]
     Active Substance: IODINE
     Route: 065
  222. IODINE [Suspect]
     Active Substance: IODINE
     Route: 065
  223. IODINE [Suspect]
     Active Substance: IODINE
     Route: 065
  224. CALTRATE [Suspect]
     Active Substance: CALCIUM CARBONATE
     Indication: Product used for unknown indication
     Route: 065
  225. CALTRATE [Suspect]
     Active Substance: CALCIUM CARBONATE
     Indication: Product used for unknown indication
     Route: 065
  226. CALTRATE [Suspect]
     Active Substance: CALCIUM CARBONATE
     Route: 016
  227. CALTRATE [Suspect]
     Active Substance: CALCIUM CARBONATE
     Route: 058
  228. ACETAMINOPHEN [Suspect]
     Active Substance: ACETAMINOPHEN
     Indication: Product used for unknown indication
     Route: 065
  229. ACETAMINOPHEN [Suspect]
     Active Substance: ACETAMINOPHEN
     Route: 065
  230. DICLOFENAC DIETHYLAMINE [Suspect]
     Active Substance: DICLOFENAC DIETHYLAMINE
     Indication: Product used for unknown indication
     Route: 065
  231. DICLOFENAC DIETHYLAMINE [Suspect]
     Active Substance: DICLOFENAC DIETHYLAMINE
     Route: 065
  232. DICLOFENAC DIETHYLAMINE [Suspect]
     Active Substance: DICLOFENAC DIETHYLAMINE
     Route: 065
  233. DICLOFENAC DIETHYLAMINE [Suspect]
     Active Substance: DICLOFENAC DIETHYLAMINE
     Route: 065
  234. DICLOFENAC DIETHYLAMINE [Suspect]
     Active Substance: DICLOFENAC DIETHYLAMINE
     Route: 065
  235. CLOTRIMAZOLE [Suspect]
     Active Substance: CLOTRIMAZOLE
     Indication: Product used for unknown indication
     Route: 065
  236. CLOTRIMAZOLE [Suspect]
     Active Substance: CLOTRIMAZOLE
     Route: 048
  237. CLOTRIMAZOLE [Suspect]
     Active Substance: CLOTRIMAZOLE
     Route: 048
  238. CLOTRIMAZOLE [Suspect]
     Active Substance: CLOTRIMAZOLE
     Route: 065
  239. CLOTRIMAZOLE [Suspect]
     Active Substance: CLOTRIMAZOLE
     Route: 050
  240. CLOTRIMAZOLE [Suspect]
     Active Substance: CLOTRIMAZOLE
     Dosage: 10 MG, QD
     Route: 050
  241. CLOTRIMAZOLE [Suspect]
     Active Substance: CLOTRIMAZOLE
     Dosage: 10 MG
     Route: 065
  242. CLOTRIMAZOLE [Suspect]
     Active Substance: CLOTRIMAZOLE
     Route: 050
  243. CONTAC [Suspect]
     Active Substance: ACETAMINOPHEN\PHENYLEPHRINE HYDROCHLORIDE
     Indication: Product used for unknown indication
     Route: 065
  244. CONTAC [Suspect]
     Active Substance: ACETAMINOPHEN\PHENYLEPHRINE HYDROCHLORIDE
     Route: 065
  245. CONTAC [Suspect]
     Active Substance: ACETAMINOPHEN\PHENYLEPHRINE HYDROCHLORIDE
     Route: 048
  246. CONTAC [Suspect]
     Active Substance: ACETAMINOPHEN\PHENYLEPHRINE HYDROCHLORIDE
     Route: 048
  247. CALCIUM CARBONATE\CHOLECALCIFEROL [Suspect]
     Active Substance: CALCIUM CARBONATE\CHOLECALCIFEROL
     Indication: Product used for unknown indication
     Route: 065
  248. CALCIUM CARBONATE\CHOLECALCIFEROL [Suspect]
     Active Substance: CALCIUM CARBONATE\CHOLECALCIFEROL
     Route: 050
  249. CALCIUM CARBONATE\CHOLECALCIFEROL [Suspect]
     Active Substance: CALCIUM CARBONATE\CHOLECALCIFEROL
     Route: 065
  250. CALCIUM CARBONATE\CHOLECALCIFEROL [Suspect]
     Active Substance: CALCIUM CARBONATE\CHOLECALCIFEROL
     Route: 050
  251. ACETAMINOPHEN [Suspect]
     Active Substance: ACETAMINOPHEN
     Indication: Product used for unknown indication
     Route: 065
  252. ACETAMINOPHEN [Suspect]
     Active Substance: ACETAMINOPHEN
     Route: 065
  253. ACETAMINOPHEN [Suspect]
     Active Substance: ACETAMINOPHEN
     Route: 065
  254. ACETAMINOPHEN [Suspect]
     Active Substance: ACETAMINOPHEN
     Route: 065
  255. ACETAMINOPHEN [Suspect]
     Active Substance: ACETAMINOPHEN
     Route: 065
  256. ACETAMINOPHEN [Suspect]
     Active Substance: ACETAMINOPHEN
     Route: 058
  257. OMEPRAZOLE [Suspect]
     Active Substance: OMEPRAZOLE
     Indication: Product used for unknown indication
     Route: 016
  258. OMEPRAZOLE [Suspect]
     Active Substance: OMEPRAZOLE
     Route: 016
  259. CETIRIZINE HYDROCHLORIDE [Suspect]
     Active Substance: CETIRIZINE HYDROCHLORIDE
     Indication: Product used for unknown indication
     Route: 065
  260. CETIRIZINE HYDROCHLORIDE [Suspect]
     Active Substance: CETIRIZINE HYDROCHLORIDE
     Route: 048
  261. CETIRIZINE HYDROCHLORIDE [Suspect]
     Active Substance: CETIRIZINE HYDROCHLORIDE
     Route: 048
  262. CETIRIZINE HYDROCHLORIDE [Suspect]
     Active Substance: CETIRIZINE HYDROCHLORIDE
     Route: 065
  263. VOLTAROL [Suspect]
     Active Substance: DICLOFENAC SODIUM
     Indication: Product used for unknown indication
     Route: 065
  264. VOLTAROL [Suspect]
     Active Substance: DICLOFENAC SODIUM
     Route: 065
  265. CHLORHEXIDINE GLUCONATE [Suspect]
     Active Substance: CHLORHEXIDINE GLUCONATE
     Indication: Product used for unknown indication
     Route: 050
  266. CHLORHEXIDINE GLUCONATE [Suspect]
     Active Substance: CHLORHEXIDINE GLUCONATE
     Route: 050

REACTIONS (129)
  - Hepatic cirrhosis [Fatal]
  - Hepatic enzyme increased [Fatal]
  - Hand deformity [Fatal]
  - General physical health deterioration [Fatal]
  - Folliculitis [Fatal]
  - Glossodynia [Fatal]
  - Grip strength decreased [Fatal]
  - Foot deformity [Fatal]
  - Fibromyalgia [Fatal]
  - Gait disturbance [Fatal]
  - Gait inability [Fatal]
  - Headache [Fatal]
  - Helicobacter infection [Fatal]
  - Adjustment disorder with depressed mood [Fatal]
  - Bone erosion [Fatal]
  - Dizziness [Fatal]
  - Breast cancer stage III [Fatal]
  - Retinitis [Fatal]
  - Chest pain [Fatal]
  - Joint range of motion decreased [Fatal]
  - Sleep disorder due to general medical condition, insomnia type [Fatal]
  - Liver injury [Fatal]
  - Lower limb fracture [Fatal]
  - Lupus vulgaris [Fatal]
  - Pneumonia [Fatal]
  - Rheumatic fever [Fatal]
  - Spinal fusion surgery [Fatal]
  - Vomiting [Fatal]
  - Blister [Fatal]
  - Asthma [Fatal]
  - Synovitis [Fatal]
  - Prescribed underdose [Fatal]
  - Seronegative arthritis [Fatal]
  - Arthralgia [Fatal]
  - Swollen joint count increased [Fatal]
  - Fatigue [Fatal]
  - Prescribed overdose [Fatal]
  - Sciatica [Fatal]
  - Swelling [Fatal]
  - Oedema peripheral [Fatal]
  - Depression [Fatal]
  - Laryngitis [Fatal]
  - Lupus-like syndrome [Fatal]
  - Injury [Fatal]
  - Systemic lupus erythematosus [Fatal]
  - Road traffic accident [Fatal]
  - Weight increased [Fatal]
  - Rheumatoid arthritis [Fatal]
  - Psoriasis [Fatal]
  - Muscular weakness [Fatal]
  - Tachycardia [Fatal]
  - Irritable bowel syndrome [Fatal]
  - Autoimmune disorder [Fatal]
  - Mobility decreased [Fatal]
  - Pain [Fatal]
  - Confusional state [Fatal]
  - Wound infection [Fatal]
  - Hypercholesterolaemia [Fatal]
  - Weight decreased [Fatal]
  - Peripheral swelling [Fatal]
  - Deep vein thrombosis postoperative [Fatal]
  - Dislocation of vertebra [Fatal]
  - Wound [Fatal]
  - Rheumatoid factor positive [Fatal]
  - Sinusitis [Fatal]
  - Type 2 diabetes mellitus [Fatal]
  - Infusion related reaction [Fatal]
  - Condition aggravated [Fatal]
  - Red blood cell sedimentation rate increased [Fatal]
  - Nasopharyngitis [Fatal]
  - Anti-cyclic citrullinated peptide antibody positive [Fatal]
  - Discomfort [Fatal]
  - Psoriatic arthropathy [Fatal]
  - Walking aid user [Fatal]
  - Pyrexia [Fatal]
  - Abdominal discomfort [Fatal]
  - Anti-cyclic citrullinated peptide antibody [Fatal]
  - Contusion [Fatal]
  - Blood cholesterol increased [Fatal]
  - Memory impairment [Fatal]
  - Pruritus [Fatal]
  - Hypertension [Fatal]
  - Hypoaesthesia [Fatal]
  - Dyspnoea [Fatal]
  - Decreased appetite [Fatal]
  - Alopecia [Fatal]
  - Exostosis [Fatal]
  - Osteoarthritis [Fatal]
  - Crohn^s disease [Fatal]
  - Bronchitis [Fatal]
  - Osteoporosis [Fatal]
  - Nausea [Fatal]
  - Joint stiffness [Fatal]
  - Liver function test increased [Fatal]
  - Joint dislocation [Fatal]
  - Sleep disorder [Fatal]
  - Spondylitis [Fatal]
  - Delirium [Fatal]
  - Wheezing [Fatal]
  - Musculoskeletal stiffness [Fatal]
  - Upper respiratory tract infection [Fatal]
  - Pain in extremity [Fatal]
  - Drug-induced liver injury [Fatal]
  - Ear infection [Fatal]
  - Pericarditis [Fatal]
  - Disability [Fatal]
  - Impaired healing [Fatal]
  - Dyspepsia [Fatal]
  - Duodenal ulcer perforation [Fatal]
  - Stomatitis [Fatal]
  - Pemphigus [Fatal]
  - Arthritis [Fatal]
  - Oedema [Fatal]
  - Rash [Fatal]
  - Infection [Fatal]
  - Joint swelling [Fatal]
  - Hypersensitivity [Fatal]
  - Knee arthroplasty [Fatal]
  - Muscle injury [Fatal]
  - Visual impairment [Fatal]
  - Hip arthroplasty [Fatal]
  - Arthropathy [Fatal]
  - Urticaria [Fatal]
  - Loss of personal independence in daily activities [Fatal]
  - C-reactive protein increased [Fatal]
  - Amnesia [Fatal]
  - Pulmonary fibrosis [Fatal]
  - Diarrhoea [Fatal]
  - Anxiety [Fatal]
